FAERS Safety Report 8804913 (Version 2)
Quarter: 2015Q1

REPORT INFORMATION
  Report Type: Report from Study
  Country: US (occurrence: US)
  Receive Date: 20120924
  Receipt Date: 20150226
  Transmission Date: 20150721
  Serious: Yes (Death)
  Sender: FDA-Public Use
  Company Number: US-ROCHE-1090933

PATIENT
  Sex: Male
  Weight: 87.62 kg

DRUGS (11)
  1. TAXOL [Concomitant]
     Active Substance: PACLITAXEL
     Route: 042
  2. AVASTIN [Suspect]
     Active Substance: BEVACIZUMAB
     Indication: LUNG NEOPLASM MALIGNANT
     Route: 042
     Dates: start: 20060710
  3. CARBOPLATIN. [Concomitant]
     Active Substance: CARBOPLATIN
     Route: 042
  4. CIMETIDINE [Concomitant]
     Active Substance: CIMETIDINE
     Route: 042
  5. BENADRYL [Concomitant]
     Active Substance: DIPHENHYDRAMINE HYDROCHLORIDE
     Route: 042
  6. ALBUTEROL. [Concomitant]
     Active Substance: ALBUTEROL
  7. CARBOPLATIN. [Concomitant]
     Active Substance: CARBOPLATIN
     Route: 042
  8. ZOFRAN [Concomitant]
     Active Substance: ONDANSETRON HYDROCHLORIDE
     Route: 042
  9. ADVAIR HFA [Concomitant]
     Active Substance: FLUTICASONE PROPIONATE\SALMETEROL XINAFOATE
  10. DECADRON [Concomitant]
     Active Substance: DEXAMETHASONE
     Route: 042
  11. TAXOL [Concomitant]
     Active Substance: PACLITAXEL
     Route: 042

REACTIONS (6)
  - Death [Fatal]
  - Pain [Unknown]
  - Asthenia [Unknown]
  - Decreased appetite [Unknown]
  - Oedema peripheral [Unknown]
  - Neutropenia [Unknown]
